FAERS Safety Report 9687530 (Version 2)
Quarter: 2013Q4

REPORT INFORMATION
  Report Type: Report from Study
  Country: CA (occurrence: CA)
  Receive Date: 20131114
  Receipt Date: 20131128
  Transmission Date: 20140711
  Serious: Yes (Other)
  Sender: FDA-Public Use
  Company Number: CA-JNJFOC-20131106096

PATIENT
  Sex: Male
  Weight: 67.13 kg

DRUGS (1)
  1. REMICADE [Suspect]
     Indication: CROHN^S DISEASE
     Dosage: 400 MG Q6/52
     Route: 042
     Dates: start: 200408

REACTIONS (2)
  - Folliculitis [Not Recovered/Not Resolved]
  - Conjunctivitis [Not Recovered/Not Resolved]
